FAERS Safety Report 7486079-1 (Version None)
Quarter: 2011Q2

REPORT INFORMATION
  Report Type: 
  Country: None (occurrence: None)
  Receive Date: 20110517
  Receipt Date: 20110506
  Transmission Date: 20111010
  Serious: Yes (Hospitalization)
  Sender: FDA-Public Use
  Company Number: NL-GENENTECH-307918

PATIENT
  Sex: Male
  Weight: 75 kg

DRUGS (12)
  1. VINCRISTINE [Suspect]
     Dosage: 11.8 MG, UNK
     Route: 042
     Dates: start: 20101216
  2. DOXORUBICIN HCL [Suspect]
     Indication: DIFFUSE LARGE B-CELL LYMPHOMA
     Dosage: 98.5 MG, UNK
     Route: 042
     Dates: start: 20100924
  3. DOXORUBICIN HCL [Suspect]
     Dosage: 97.5 MG, UNK
     Route: 042
     Dates: start: 20101216
  4. MORPHINE [Concomitant]
     Indication: ABDOMINAL PAIN UPPER
     Dosage: UNK
     Route: 048
     Dates: start: 20100901
  5. CYCLOPHOSPHAMIDE [Suspect]
     Indication: DIFFUSE LARGE B-CELL LYMPHOMA
     Dosage: 1462 MG, UNK
     Route: 042
     Dates: start: 20100924
  6. VINCRISTINE [Suspect]
     Indication: DIFFUSE LARGE B-CELL LYMPHOMA
     Dosage: 2 MG, UNK
     Route: 042
     Dates: start: 20100924
  7. OXYCODONE HCL [Concomitant]
     Indication: ABDOMINAL PAIN UPPER
     Dosage: 5 MG, PRN
     Route: 048
     Dates: start: 20100903
  8. METOPROLOL SUCCINATE [Concomitant]
     Indication: ATRIAL FIBRILLATION
     Dosage: 100 MG, UNK
     Route: 048
     Dates: start: 20101209, end: 20110102
  9. RITUXIMAB [Suspect]
     Indication: DIFFUSE LARGE B-CELL LYMPHOMA
     Dosage: 700 MG, UNK
     Route: 042
     Dates: start: 20100924
  10. G-CSF [Suspect]
     Indication: DIFFUSE LARGE B-CELL LYMPHOMA
     Dosage: 6 MG, UNK
     Route: 058
     Dates: start: 20100925
  11. PANTOPRAZOL [Concomitant]
     Indication: PRODUCT USED FOR UNKNOWN INDICATION
     Dosage: 40 MG, UNK
     Route: 048
     Dates: start: 20100909
  12. PREDNISONE TAB [Suspect]
     Indication: DIFFUSE LARGE B-CELL LYMPHOMA
     Dosage: 100 MG, UNK
     Route: 048
     Dates: start: 20100924

REACTIONS (2)
  - INFECTION [None]
  - DEEP VEIN THROMBOSIS [None]
